FAERS Safety Report 7701806-3 (Version None)
Quarter: 2011Q3

REPORT INFORMATION
  Report Type: 
  Country: None (occurrence: None)
  Receive Date: 20110822
  Receipt Date: 20110812
  Transmission Date: 20111222
  Serious: Yes (Other)
  Sender: FDA-Public Use
  Company Number: US-BAYER-201024531NA

PATIENT
  Age: 34 Year
  Sex: Female

DRUGS (2)
  1. YASMIN [Suspect]
     Indication: ORAL CONTRACEPTION
     Route: 048
     Dates: start: 20050101, end: 20100501
  2. YASMIN [Suspect]
     Dosage: UNK
     Dates: start: 20090501, end: 20100501

REACTIONS (9)
  - POST CHOLECYSTECTOMY SYNDROME [None]
  - PULMONARY EMBOLISM [None]
  - PSYCHIATRIC SYMPTOM [None]
  - ANXIETY [None]
  - GASTROINTESTINAL DISORDER [None]
  - PAIN [None]
  - INJURY [None]
  - GALLBLADDER PAIN [None]
  - ANHEDONIA [None]
